FAERS Safety Report 12609574 (Version 1)
Quarter: 2016Q3

REPORT INFORMATION
  Report Type: Spontaneous
  Country: US (occurrence: None)
  Receive Date: 20160729
  Receipt Date: 20160729
  Transmission Date: 20161109
  Serious: Yes (Disabling)
  Sender: FDA-Public Use
  Company Number: None

PATIENT
  Age: 41 Year
  Sex: Female
  Weight: 89.81 kg

DRUGS (5)
  1. DELURA [Concomitant]
  2. LEVOFLOXACIN. [Suspect]
     Active Substance: LEVOFLOXACIN
     Indication: PNEUMONIA
     Route: 048
     Dates: start: 20121215, end: 20150909
  3. ALLEGRA-D [Concomitant]
     Active Substance: FEXOFENADINE\PSEUDOEPHEDRINE
  4. LEVOFLOXACIN. [Suspect]
     Active Substance: LEVOFLOXACIN
     Indication: SINUSITIS
     Route: 048
     Dates: start: 20121215, end: 20150909
  5. SINGULAIR [Concomitant]
     Active Substance: MONTELUKAST SODIUM

REACTIONS (8)
  - Feeling abnormal [None]
  - Nervous system disorder [None]
  - Arthralgia [None]
  - Tendon pain [None]
  - Tendon discomfort [None]
  - Arthropathy [None]
  - Musculoskeletal discomfort [None]
  - Muscle disorder [None]

NARRATIVE: CASE EVENT DATE: 20121215
